FAERS Safety Report 21616602 (Version 1)
Quarter: 2022Q4

REPORT INFORMATION
  Report Type: Spontaneous
  Country: US (occurrence: US)
  Receive Date: 20221118
  Receipt Date: 20221118
  Transmission Date: 20230112
  Serious: No
  Sender: FDA-Public Use
  Company Number: US-SA-SAC20221115000255

PATIENT
  Sex: Male
  Weight: 90.71 kg

DRUGS (9)
  1. DUPIXENT [Suspect]
     Active Substance: DUPILUMAB
     Indication: Chronic rhinosinusitis with nasal polyps
     Dosage: 300 MG, QOW
     Route: 058
     Dates: start: 202012
  2. ASPIRIN [Concomitant]
     Active Substance: ASPIRIN
  3. ASTAXANTHIN [Concomitant]
     Active Substance: ASTAXANTHIN
  4. ECHINACEA [ECHINACEA PURPUREA] [Concomitant]
  5. GARLIC [Concomitant]
     Active Substance: GARLIC
  6. MINERALS\VITAMINS [Concomitant]
     Active Substance: MINERALS\VITAMINS
  7. FISH OIL [Concomitant]
     Active Substance: FISH OIL
  8. ZYRTEC [Concomitant]
     Active Substance: CETIRIZINE HYDROCHLORIDE
  9. SAMBUCOL BLACK ELDERBERRY [Concomitant]

REACTIONS (1)
  - COVID-19 [Recovered/Resolved]
